FAERS Safety Report 19855888 (Version 1)
Quarter: 2021Q3

REPORT INFORMATION
  Report Type: Spontaneous
  Country: DE (occurrence: DE)
  Receive Date: 20210920
  Receipt Date: 20210920
  Transmission Date: 20211014
  Serious: Yes (Hospitalization)
  Sender: FDA-Public Use
  Company Number: DE-TEVA-2021-DE-1953379

PATIENT
  Age: 44 Year
  Sex: Female
  Weight: 163 kg

DRUGS (18)
  1. NOVORAPID FLEXPEN 300E. 100E./ML [Concomitant]
     Dosage: 300 U / 3ML, ACCORDING TO THE SCHEME, PRE?FILLED SYRINGES, 1 DF
     Route: 058
  2. DULOXEHEXAL 60 MG MAGENSAFTRESISTENTE HARTKAPSELN [Concomitant]
     Dosage: 120 MILLIGRAM DAILY; 1?0?1?0, TABLETS
     Route: 048
  3. METFORMIN [Concomitant]
     Active Substance: METFORMIN HYDROCHLORIDE
     Dosage: 2000 MILLIGRAM DAILY; 1?0?1?0
     Route: 048
  4. RELVAR ELLIPTA 92MIKROGRAMM/22MIKROGRAMM [Concomitant]
     Dosage: 1 DOSAGE FORMS DAILY; 92 | 22 MCG, 1?0?0?0
     Route: 055
  5. NITRENDIPINE [Concomitant]
     Active Substance: NITRENDIPINE
     Dosage: 40 MILLIGRAM DAILY; 1?0?1?0
     Route: 048
  6. FOL LICHTENSTEIN [Concomitant]
     Dosage: 5 MG, MONDAYS,
     Route: 048
  7. DEKRISTOL 20000 [Concomitant]
     Active Substance: CHOLECALCIFEROL
     Dosage: 20,000 IU, SATURDAYS
     Route: 048
  8. PROTAPHANE PENFILL 300I.E. 100I.E./ML [Concomitant]
     Dosage: 60 DOSAGE FORMS DAILY; 300 IU / 3ML, 0?0?60?0, PRE?FILLED SYRINGES
     Route: 058
  9. VICTOZA 6MG/ML INJEKTIONSLOSUNG IN EINEM FERTIGPEN [Concomitant]
     Dosage: 6 MILLIGRAM/MILLILITERS DAILY; 6 MG / ML, MORNING, PRE?FILLED SYRINGES
     Route: 058
  10. ATORVASTATIN [Concomitant]
     Active Substance: ATORVASTATIN
     Dosage: 20 MILLIGRAM DAILY;  0?0?1?0
     Route: 048
  11. EFEROX 50 MIKROGRAMM [Concomitant]
     Dosage: 50 MICROGRAM DAILY; 1?0?0?0,
     Route: 048
  12. STELARA [Suspect]
     Active Substance: USTEKINUMAB
     Dosage: 90 MG / ML, BREAK, PRE?FILLED SYRINGES, 1 DF
     Route: 058
  13. CANDESARTAN CILEXETIL AND HYDROCHLOROTHIAZIDE [Concomitant]
     Active Substance: CANDESARTAN CILEXETIL\HYDROCHLOROTHIAZIDE
     Dosage: 1 DOSAGE FORMS DAILY; 16|12.5 MG, 1?0?0?0
     Route: 048
  14. PANTOPRAZOL [Concomitant]
     Active Substance: PANTOPRAZOLE SODIUM
     Dosage: 20 MILLIGRAM DAILY; 1?0?0?0
     Route: 048
  15. SALBUHEXAL [Concomitant]
     Active Substance: ALBUTEROL
     Dosage: 0.1 MG, IF NECESSARY, METERED DOSE INHALER
     Route: 055
  16. IBUPROFEN. [Concomitant]
     Active Substance: IBUPROFEN
     Dosage: 800 MG, IF NECESSARY
     Route: 048
  17. METHOTREXATE. [Suspect]
     Active Substance: METHOTREXATE
     Dosage: 12.5 MG / 0.31ML, BREAK, PRE?FILLED SYRINGES, 1 DF
     Route: 058
  18. CANDESARTAN. [Concomitant]
     Active Substance: CANDESARTAN
     Dosage: 16 MILLIGRAM DAILY; 0?0?1?0
     Route: 048

REACTIONS (5)
  - Chest discomfort [Unknown]
  - Cough [Unknown]
  - Dyspnoea [Unknown]
  - Coronavirus test positive [Unknown]
  - Dyspnoea exertional [Unknown]
